FAERS Safety Report 6821538-3 (Version None)
Quarter: 2010Q3

REPORT INFORMATION
  Report Type: 
  Country: None (occurrence: None)
  Receive Date: 20100707
  Receipt Date: 20090508
  Transmission Date: 20110219
  Serious: No
  Sender: FDA-Public Use
  Company Number: US-PFIZER INC-2009196040

PATIENT
  Sex: Female
  Weight: 52.608 kg

DRUGS (7)
  1. SERTRALINE HCL [Suspect]
     Indication: ANXIETY
     Dosage: 50 MG, 1X/DAY
     Dates: start: 20080901
  2. SERTRALINE HCL [Suspect]
     Indication: NERVOUSNESS
  3. IBANDRONATE SODIUM [Concomitant]
     Dosage: UNK
  4. FISH OIL [Concomitant]
     Dosage: UNK
  5. MULTI-VITAMINS [Concomitant]
     Dosage: UNK
  6. VITACAL [Concomitant]
     Dosage: UNK
  7. ACETYLSALICYLIC ACID [Concomitant]
     Dosage: UNK

REACTIONS (5)
  - ALOPECIA [None]
  - ERYTHEMA [None]
  - FORMICATION [None]
  - PRURITUS [None]
  - SKIN IRRITATION [None]
